FAERS Safety Report 15052005 (Version 1)
Quarter: 2018Q2

REPORT INFORMATION
  Report Type: Spontaneous
  Country: US (occurrence: US)
  Receive Date: 20180622
  Receipt Date: 20180622
  Transmission Date: 20180711
  Serious: No
  Sender: FDA-Public Use
  Company Number: US-AMGEN-USASP2015049246

PATIENT
  Age: 86 Year
  Sex: Male

DRUGS (2)
  1. XGEVA [Suspect]
     Active Substance: DENOSUMAB
     Indication: BONE CANCER
  2. XGEVA [Suspect]
     Active Substance: DENOSUMAB
     Indication: MALIGNANT NEOPLASM OF RENAL PELVIS
     Dosage: 1 MG, Q4WK
     Route: 065

REACTIONS (1)
  - Off label use [Unknown]
